FAERS Safety Report 8396234-4 (Version None)
Quarter: 2012Q2

REPORT INFORMATION
  Report Type: 
  Country: None (occurrence: None)
  Receive Date: 20120530
  Receipt Date: 20120515
  Transmission Date: 20120825
  Serious: Yes (Other)
  Sender: FDA-Public Use
  Company Number: BR-ROCHE-727880

PATIENT
  Sex: Female
  Weight: 68 kg

DRUGS (11)
  1. ACTEMRA [Suspect]
     Indication: RHEUMATOID ARTHRITIS
     Dates: start: 20100901
  2. BONIVA [Concomitant]
     Indication: OSTEOPOROSIS
     Dosage: ROUTE: ENDOVENOUS
     Route: 042
  3. MABTHERA [Suspect]
     Indication: RHEUMATOID ARTHRITIS
     Dosage: ROUTE: ENDOVENOUS, FORM: INFUSION
     Route: 042
     Dates: start: 20090630, end: 20100611
  4. CAL D [Concomitant]
     Indication: OSTEOPOROSIS
     Route: 048
  5. DOMPERIDONE [Concomitant]
     Indication: GASTRITIS
     Dosage: OTHER INDICATION: ESOPHAGITIS 2 GRADE
     Route: 048
  6. ACETAMINOPHEN [Concomitant]
     Indication: PREMEDICATION
     Route: 048
  7. METHYLPREDNISOLONE [Concomitant]
     Indication: PREMEDICATION
     Dosage: ROUTE: ENDOVENOUS
     Route: 042
  8. OMEPRAZOLE [Concomitant]
     Indication: GASTRITIS
     Dosage: OTHER INDICATION: ESOPHAGITIS 2 GRADE, DOSE: 20 MG
     Route: 048
  9. MULTIVITAMIN [Concomitant]
     Indication: RETINAL DEGENERATION
  10. EUTHYROX [Concomitant]
     Indication: HYPOTHYROIDISM
     Route: 048
  11. DIPHENHYDRAMINE HCL [Concomitant]
     Indication: PREMEDICATION
     Dosage: ROUTE: ENDOVENOUS
     Route: 042

REACTIONS (15)
  - ANGIOEDEMA [None]
  - ERYTHEMA [None]
  - SYNCOPE [None]
  - BRADYCARDIA [None]
  - PRURITUS [None]
  - VOMITING [None]
  - OXYGEN SATURATION DECREASED [None]
  - HERPES ZOSTER [None]
  - SWELLING FACE [None]
  - PYREXIA [None]
  - GENERALISED ERYTHEMA [None]
  - URTICARIA [None]
  - NAUSEA [None]
  - LOSS OF CONSCIOUSNESS [None]
  - ABDOMINAL PAIN [None]
